FAERS Safety Report 6986251-0 (Version None)
Quarter: 2010Q3

REPORT INFORMATION
  Report Type: 
  Country: None (occurrence: None)
  Receive Date: 20100915
  Receipt Date: 20090806
  Transmission Date: 20110219
  Serious: Yes (Other)
  Sender: FDA-Public Use
  Company Number: US-WYE-H09774909

PATIENT
  Sex: Female
  Weight: 72.64 kg

DRUGS (2)
  1. PRISTIQ [Suspect]
     Indication: POSTPARTUM DEPRESSION
     Route: 048
     Dates: start: 20090422, end: 20090423
  2. PERCOCET [Concomitant]
     Indication: PAIN
     Dosage: UNKNOWN Q 6H PRN DOSE
     Route: 048
     Dates: start: 20090419

REACTIONS (1)
  - CONVULSION [None]
